APPROVED DRUG PRODUCT: TOLBUTAMIDE
Active Ingredient: TOLBUTAMIDE
Strength: 500MG
Dosage Form/Route: TABLET;ORAL
Application: A088950 | Product #001
Applicant: PUREPAC PHARMACEUTICAL CO
Approved: Jun 17, 1985 | RLD: No | RS: No | Type: DISCN